FAERS Safety Report 10663963 (Version 3)
Quarter: 2015Q1

REPORT INFORMATION
  Report Type: Spontaneous
  Country: US (occurrence: US)
  Receive Date: 20141219
  Receipt Date: 20150223
  Transmission Date: 20150720
  Serious: Yes (Other)
  Sender: FDA-Public Use
  Company Number: US-ELI_LILLY_AND_COMPANY-US201412003813

PATIENT
  Sex: Male
  Weight: 85.71 kg

DRUGS (2)
  1. HALDOL [Concomitant]
     Active Substance: HALOPERIDOL
  2. OLANZAPINE. [Suspect]
     Active Substance: OLANZAPINE
     Indication: PRODUCT USED FOR UNKNOWN INDICATION
     Dosage: 25 MG, QD
     Route: 048
     Dates: start: 201406, end: 20141208

REACTIONS (4)
  - Pancytopenia [Unknown]
  - T-lymphocyte count decreased [Unknown]
  - Monocyte count abnormal [Unknown]
  - Prescribed overdose [Unknown]
